FAERS Safety Report 7502968-3 (Version None)
Quarter: 2011Q2

REPORT INFORMATION
  Report Type: 
  Country: None (occurrence: None)
  Receive Date: 20110525
  Receipt Date: 20100915
  Transmission Date: 20111010
  Serious: No
  Sender: FDA-Public Use
  Company Number: US-NOVEN-ALL1-2010-04879

PATIENT
  Sex: Male
  Weight: 34.014 kg

DRUGS (3)
  1. CLONIDINE HYDROCHLORIDE [Concomitant]
     Dosage: .1 MG, 1X/DAY:QD
     Route: 048
  2. DAYTRANA [Suspect]
     Dosage: 20 MG, 1X/DAY:QD
     Route: 062
     Dates: start: 20090101
  3. CLONIDINE HYDROCHLORIDE [Concomitant]
     Dosage: .2 MG, 1X/DAY:QD, (2) .1 MG TABLETS DAILIY
     Route: 048

REACTIONS (4)
  - INCORRECT DRUG ADMINISTRATION DURATION [None]
  - INSOMNIA [None]
  - PRODUCT QUALITY ISSUE [None]
  - DRUG INEFFECTIVE [None]
